FAERS Safety Report 4734776-0 (Version None)
Quarter: 2005Q3

REPORT INFORMATION
  Report Type: 
  Country: None (occurrence: None)
  Receive Date: 20050804
  Receipt Date: 20050728
  Transmission Date: 20060218
  Serious: Yes (Other)
  Sender: FDA-Public Use
  Company Number: GB-GLAXOSMITHKLINE-B0389156A

PATIENT
  Age: 74 Year
  Sex: Male
  Weight: 90 kg

DRUGS (8)
  1. AVANDIA [Suspect]
     Indication: DIABETES MELLITUS
     Dosage: 4MG UNKNOWN
     Route: 048
     Dates: start: 20050211, end: 20050620
  2. AMLODIPINE [Concomitant]
     Indication: BLOOD PRESSURE
     Dosage: 10MG PER DAY
     Route: 048
  3. ATENOLOL [Concomitant]
     Indication: BLOOD PRESSURE
     Dosage: 50MG PER DAY
     Route: 048
  4. METFORMIN [Concomitant]
     Dosage: 500UNIT TWICE PER DAY
     Route: 048
  5. GLICLAZIDE [Concomitant]
     Route: 065
  6. THYROXINE [Concomitant]
     Route: 065
  7. SIMVASTATIN [Concomitant]
     Dosage: 10MG PER DAY
     Route: 065
  8. TAMSULOSIN [Concomitant]
     Indication: DIABETES MELLITUS
     Route: 065

REACTIONS (3)
  - JAUNDICE [None]
  - JOINT SWELLING [None]
  - POISONING [None]
